FAERS Safety Report 23722404 (Version 1)
Quarter: 2024Q2

REPORT INFORMATION
  Report Type: Report from Study
  Country: US (occurrence: US)
  Receive Date: 20240409
  Receipt Date: 20240409
  Transmission Date: 20240716
  Serious: Yes (Hospitalization, Other)
  Sender: FDA-Public Use
  Company Number: US-MYLANLABS-2024M1031608

PATIENT
  Age: 58 Year
  Sex: Female

DRUGS (1)
  1. CLOZAPINE [Suspect]
     Active Substance: CLOZAPINE
     Indication: Product used for unknown indication
     Dosage: 350 MILLIGRAM, QD (100 MG IN THE MORNING AND 250 MG IN THE EVENING)
     Route: 065

REACTIONS (3)
  - Small intestinal obstruction [Unknown]
  - Antipsychotic drug level increased [Unknown]
  - Lethargy [Unknown]

NARRATIVE: CASE EVENT DATE: 20240331
